FAERS Safety Report 9619672 (Version 2)
Quarter: 2013Q4

REPORT INFORMATION
  Report Type: Spontaneous
  Country: AT (occurrence: AT)
  Receive Date: 20131014
  Receipt Date: 20131107
  Transmission Date: 20140711
  Serious: Yes (Other)
  Sender: FDA-Public Use
  Company Number: AT-ELI_LILLY_AND_COMPANY-AT201310003599

PATIENT
  Sex: Female

DRUGS (14)
  1. FORSTEO [Suspect]
     Indication: PRODUCT USED FOR UNKNOWN INDICATION
     Dosage: 20 UG, QD
     Route: 058
     Dates: start: 201211, end: 201310
  2. CAL-D-VITA [Concomitant]
     Dosage: UNK, BID
     Route: 065
  3. THYREX [Concomitant]
     Dosage: 100 UG, UNKNOWN
     Route: 065
  4. CO-MEPRIL [Concomitant]
     Route: 065
  5. BISOPROLOL [Concomitant]
     Route: 065
  6. NEXIUM [Concomitant]
     Route: 065
  7. TEBOFORTAN [Concomitant]
     Route: 065
  8. SIMVASTATIN [Concomitant]
     Route: 065
  9. MEPRIL                             /00574902/ [Concomitant]
     Route: 065
  10. NORVASC [Concomitant]
     Route: 065
  11. SIRDALUD [Concomitant]
     Route: 065
  12. NITROLINGUAL [Concomitant]
     Route: 065
  13. ALLOPURINOL [Concomitant]
     Route: 065
  14. DEFLAMAT                           /00372302/ [Concomitant]
     Route: 065

REACTIONS (1)
  - Bronchial carcinoma [Unknown]
